FAERS Safety Report 4719667-3 (Version None)
Quarter: 2005Q3

REPORT INFORMATION
  Report Type: 
  Country: None (occurrence: None)
  Receive Date: 20050721
  Receipt Date: 20040609
  Transmission Date: 20060218
  Serious: No
  Sender: FDA-Public Use
  Company Number: US-GLAXOSMITHKLINE-A0513984A

PATIENT
  Age: 68 Year
  Sex: Female
  Weight: 90.9 kg

DRUGS (11)
  1. AVANDIA [Suspect]
     Dosage: 4MG PER DAY
     Route: 048
     Dates: start: 20040504
  2. GLUCOPHAGE XR [Concomitant]
     Indication: DIABETES MELLITUS
     Dosage: 2000MG PER DAY
     Route: 048
     Dates: start: 20020121
  3. METOPROLOL [Concomitant]
     Indication: HYPERTENSION
     Dosage: 50MG TWICE PER DAY
     Route: 048
     Dates: start: 20031211
  4. SYNTHROID [Concomitant]
     Indication: HYPOTHYROIDISM
     Dosage: 125MCG PER DAY
     Route: 048
     Dates: start: 20010321
  5. LISINOPRIL [Concomitant]
     Indication: HYPERTENSION
     Dosage: 40MG PER DAY
     Route: 048
     Dates: start: 20010618
  6. PAXIL CR [Concomitant]
     Dosage: 25MG PER DAY
     Route: 048
     Dates: start: 20040426
  7. AMBIEN [Concomitant]
  8. NEURONTIN [Concomitant]
     Dosage: 300MG THREE TIMES PER DAY
     Route: 048
     Dates: start: 20011116
  9. ASPIRIN [Concomitant]
     Dosage: 81MG PER DAY
     Route: 048
     Dates: start: 20031229
  10. LIPITOR [Concomitant]
     Dosage: 20MG PER DAY
     Route: 048
     Dates: start: 20010416
  11. IMDUR [Concomitant]
     Dosage: 30MG PER DAY
     Route: 048
     Dates: start: 20031119

REACTIONS (1)
  - FLATULENCE [None]
